FAERS Safety Report 8134377-0 (Version None)
Quarter: 2012Q1

REPORT INFORMATION
  Report Type: 
  Country: None (occurrence: None)
  Receive Date: 20120209
  Receipt Date: 20120127
  Transmission Date: 20120608
  Serious: Yes (Disabling, Other)
  Sender: FDA-Public Use
  Company Number: 2012MA001562

PATIENT
  Age: 85 Year
  Sex: Female

DRUGS (15)
  1. WARFARIN SODIUM [Concomitant]
  2. NICORANDIL [Concomitant]
  3. LEVOTHYROXINE SODIUM [Concomitant]
  4. CANESTAN [Concomitant]
  5. ZAPAIN [Concomitant]
  6. LACTULOSE [Concomitant]
  7. LANSOPRAZOLE [Concomitant]
  8. LOSARTAN POTASSIUM [Concomitant]
  9. BISOPROLOL [Concomitant]
  10. METFORMIN HYDROCHLORIDE [Suspect]
     Indication: TYPE 2 DIABETES MELLITUS
     Dosage: 2 DF;QD;PO
     Route: 048
     Dates: start: 20111024, end: 20111205
  11. DIGOXIN [Concomitant]
  12. FUROSEMIDE [Concomitant]
  13. SPIRONOLACTONE [Concomitant]
  14. IBANDRONATE SODIUM [Concomitant]
  15. ISMN [Concomitant]

REACTIONS (2)
  - CUTANEOUS VASCULITIS [None]
  - SKIN ULCER [None]
